FAERS Safety Report 20013048 (Version 1)
Quarter: 2021Q4

REPORT INFORMATION
  Report Type: Spontaneous
  Country: NL (occurrence: NL)
  Receive Date: 20211029
  Receipt Date: 20211029
  Transmission Date: 20220303
  Serious: Yes (Death, Other)
  Sender: FDA-Public Use
  Company Number: NL-EXELA PHARMA SCIENCES, LLC-2021EXL00034

PATIENT
  Age: 68 Year
  Sex: Female

DRUGS (1)
  1. TRANEXAMIC ACID [Suspect]
     Active Substance: TRANEXAMIC ACID
     Indication: Haemoptysis

REACTIONS (5)
  - Stress cardiomyopathy [Fatal]
  - Cardiogenic shock [Fatal]
  - Acute kidney injury [Fatal]
  - Hepatic failure [Fatal]
  - Pulmonary oedema [Unknown]
